FAERS Safety Report 23677273 (Version 1)
Quarter: 2024Q1

REPORT INFORMATION
  Report Type: Other
  Country: CN (occurrence: CN)
  Receive Date: 20240327
  Receipt Date: 20240327
  Transmission Date: 20240410
  Serious: Yes (Hospitalization)
  Sender: FDA-Public Use
  Company Number: CN-002147023-NVSC2024CN059410

PATIENT
  Sex: Female
  Weight: 1 kg

DRUGS (1)
  1. LUCENTIS [Suspect]
     Active Substance: RANIBIZUMAB
     Indication: Retinopathy of prematurity
     Dosage: 0.2 MG (OU) (VITREOUS INJECTION)
     Route: 065
     Dates: start: 20231208, end: 20231208

REACTIONS (2)
  - Vitreous haemorrhage [Recovered/Resolved with Sequelae]
  - Vitreous haemorrhage [Not Recovered/Not Resolved]

NARRATIVE: CASE EVENT DATE: 20240102
